FAERS Safety Report 9700113 (Version 1)
Quarter: 2013Q4

REPORT INFORMATION
  Report Type: Spontaneous
  Country: GB (occurrence: GB)
  Receive Date: 20131121
  Receipt Date: 20131121
  Transmission Date: 20140711
  Serious: Yes (Hospitalization)
  Sender: FDA-Public Use
  Company Number: GB-SUN PHARMACEUTICAL INDUSTRIES LTD-2013SUN05021

PATIENT
  Age: 14 Year
  Sex: Male

DRUGS (3)
  1. OLANZAPINE 5 MG TABLET [Suspect]
     Indication: BIPOLAR I DISORDER
     Dosage: 7.5 MG, DAILY
     Route: 065
  2. OLANZAPINE 5 MG TABLET [Suspect]
     Dosage: 10 MG, DAILY
     Route: 065
  3. SODIUM VALPROATE [Concomitant]
     Dosage: 800 MG, BID

REACTIONS (2)
  - Mental impairment [Recovering/Resolving]
  - Product substitution issue [Recovering/Resolving]
